FAERS Safety Report 7243310 (Version 2)
Quarter: 2016Q3

REPORT INFORMATION
  Report Type: Spontaneous
  Country: GB (occurrence: GB)
  Receive Date: 20100112
  Receipt Date: 20160926
  Transmission Date: 20161109
  Serious: Yes (Other)
  Sender: FDA-Public Use
  Company Number: GB-PFIZER INC-2009316260

PATIENT
  Age: 62 Year
  Sex: Male

DRUGS (12)
  1. LIDOCAINE HCL [Suspect]
     Active Substance: LIDOCAINE HYDROCHLORIDE
     Indication: ANAESTHESIA
     Dosage: 2 ML, UNK
     Route: 047
     Dates: start: 20070402, end: 20070402
  2. ADRENALINE [Suspect]
     Active Substance: EPINEPHRINE
     Indication: EYE IRRIGATION
     Dosage: 0.3 ML, UNK
     Route: 047
     Dates: start: 20070402, end: 20070402
  3. OCUFEN [Suspect]
     Active Substance: FLURBIPROFEN SODIUM
     Indication: POSTOPERATIVE CARE
     Dosage: UNK
     Route: 047
     Dates: start: 20070402, end: 20070402
  4. LIDOCAINE HCL [Suspect]
     Active Substance: LIDOCAINE HYDROCHLORIDE
     Indication: ANALGESIC THERAPY
  5. VANCOMYCIN HCL [Suspect]
     Active Substance: VANCOMYCIN HYDROCHLORIDE
     Indication: EYE IRRIGATION
     Dosage: 10 MG, UNK
     Route: 047
     Dates: start: 20070402, end: 20070402
  6. PROXYMETACAINE HYDROCHLORIDE [Suspect]
     Active Substance: PROPARACAINE HYDROCHLORIDE
     Indication: ANALGESIC THERAPY
     Dosage: UNK
     Route: 047
     Dates: start: 20070402, end: 20070402
  7. NEOMYCIN SULFATE. [Suspect]
     Active Substance: NEOMYCIN SULFATE
     Indication: POSTOPERATIVE CARE
     Dosage: UNK
     Dates: start: 20070402, end: 20070402
  8. BETAMETHASONE BENZOATE [Suspect]
     Active Substance: BETAMETHASONE BENZOATE
     Indication: POSTOPERATIVE CARE
     Dosage: UNK
     Route: 047
     Dates: start: 20070402, end: 20070402
  9. POVIDONE-IODINE. [Suspect]
     Active Substance: POVIDONE-IODINE
     Indication: CATARACT OPERATION
     Dosage: UNK
     Route: 047
     Dates: start: 20070402, end: 20070420
  10. CYCLOPENTOLATE. [Suspect]
     Active Substance: CYCLOPENTOLATE
     Indication: POSTOPERATIVE CARE
     Dosage: 1 %, UNK
     Route: 047
     Dates: start: 20070402, end: 20070402
  11. SODIUM HYALURONATE [Suspect]
     Active Substance: HYALURONATE SODIUM
     Dosage: UNK
     Route: 047
     Dates: start: 20070402, end: 20070402
  12. PHENYLEPHRINE [Suspect]
     Active Substance: PHENYLEPHRINE\PHENYLEPHRINE HYDROCHLORIDE
     Indication: PREOPERATIVE CARE
     Dosage: 2.5 %, UNK
     Route: 047
     Dates: start: 20070402, end: 20070402

REACTIONS (1)
  - Toxic anterior segment syndrome [Unknown]

NARRATIVE: CASE EVENT DATE: 20080414
